FAERS Safety Report 16897166 (Version 1)
Quarter: 2019Q4

REPORT INFORMATION
  Report Type: Spontaneous
  Country: MY (occurrence: MY)
  Receive Date: 20191009
  Receipt Date: 20191009
  Transmission Date: 20200122
  Serious: Yes (Other)
  Sender: FDA-Public Use
  Company Number: MY-ROCHE-2417576

PATIENT
  Sex: Male

DRUGS (30)
  1. CYCLOPHOSPHAMIDE. [Suspect]
     Active Substance: CYCLOPHOSPHAMIDE
     Dosage: R-CHOP CYCLE 3
     Route: 065
     Dates: start: 20190321
  2. DOXORUBICIN [Suspect]
     Active Substance: DOXORUBICIN
     Dosage: R-CHOP CYCLE 2
     Route: 065
     Dates: start: 20190227, end: 20190228
  3. PREDNISOLONE. [Suspect]
     Active Substance: PREDNISOLONE
     Indication: DIFFUSE LARGE B-CELL LYMPHOMA
     Dosage: R-CHOP CYCLE 1
     Route: 065
     Dates: start: 20190117
  4. CYTOSINE ARABINOSIDE [Suspect]
     Active Substance: CYTARABINE
     Indication: DIFFUSE LARGE B-CELL LYMPHOMA
     Dosage: R-DHAP CYCLE 1
     Route: 065
     Dates: start: 20190418, end: 20190421
  5. VINCRISTINE [Suspect]
     Active Substance: VINCRISTINE
     Dosage: R-CHOP CYCLE 2
     Route: 065
     Dates: start: 20190227, end: 20190228
  6. DEXAMETHASONE. [Suspect]
     Active Substance: DEXAMETHASONE
     Indication: DIFFUSE LARGE B-CELL LYMPHOMA
     Dosage: R-DHAP CYCLE 1
     Route: 065
     Dates: start: 20190418, end: 20190421
  7. DEXAMETHASONE. [Suspect]
     Active Substance: DEXAMETHASONE
     Dosage: R-DHAP CYCLE 2
     Route: 065
     Dates: start: 20190509, end: 20190512
  8. MABTHERA [Suspect]
     Active Substance: RITUXIMAB
     Dosage: R-CHOP CYCLE 3
     Route: 058
     Dates: start: 20190321
  9. MABTHERA [Suspect]
     Active Substance: RITUXIMAB
     Dosage: R-DHAP CYCLE 3
     Route: 058
     Dates: start: 20190529, end: 20190601
  10. CISPLATIN. [Suspect]
     Active Substance: CISPLATIN
     Indication: DIFFUSE LARGE B-CELL LYMPHOMA
     Dosage: R-DHAP CYCLE 1
     Route: 065
     Dates: start: 20190418, end: 20190421
  11. MABTHERA [Suspect]
     Active Substance: RITUXIMAB
     Dosage: R-DHAP CYCLE 1
     Route: 058
     Dates: start: 20190418, end: 20190421
  12. MABTHERA [Suspect]
     Active Substance: RITUXIMAB
     Dosage: R-DHAP CYCLE 2
     Route: 058
     Dates: start: 20190509, end: 20190512
  13. DOXORUBICIN [Suspect]
     Active Substance: DOXORUBICIN
     Dosage: R-CHOP CYCLE 3
     Route: 065
     Dates: start: 20190321
  14. DEXAMETHASONE. [Suspect]
     Active Substance: DEXAMETHASONE
     Dosage: R-DHAP CYCLE 4
     Route: 065
     Dates: start: 20190715, end: 20190719
  15. MABTHERA [Suspect]
     Active Substance: RITUXIMAB
     Dosage: R-DHAP CYCLE 4
     Route: 058
     Dates: start: 20190715, end: 20190719
  16. DEXAMETHASONE. [Suspect]
     Active Substance: DEXAMETHASONE
     Dosage: R-DHAP CYCLE 3
     Route: 065
     Dates: start: 20190529, end: 20190601
  17. CYCLOPHOSPHAMIDE. [Suspect]
     Active Substance: CYCLOPHOSPHAMIDE
     Dosage: R-CHOP CYCLE 2
     Route: 065
     Dates: start: 20190227, end: 20190228
  18. CYTOSINE ARABINOSIDE [Suspect]
     Active Substance: CYTARABINE
     Dosage: R-DHAP CYCLE 2
     Route: 065
     Dates: start: 20190509, end: 20190512
  19. CISPLATIN. [Suspect]
     Active Substance: CISPLATIN
     Dosage: R-DHAP CYCLE 3
     Route: 065
     Dates: start: 20190529, end: 20190601
  20. MABTHERA [Suspect]
     Active Substance: RITUXIMAB
     Indication: DIFFUSE LARGE B-CELL LYMPHOMA
     Dosage: R-CHOP CYCLE 2
     Route: 065
     Dates: start: 20190227, end: 20190228
  21. CYCLOPHOSPHAMIDE. [Suspect]
     Active Substance: CYCLOPHOSPHAMIDE
     Indication: DIFFUSE LARGE B-CELL LYMPHOMA
     Dosage: R-CHOP CYCLE 1
     Route: 065
     Dates: start: 20190117
  22. DOXORUBICIN [Suspect]
     Active Substance: DOXORUBICIN
     Indication: DIFFUSE LARGE B-CELL LYMPHOMA
     Dosage: R-CHOP CYCLE 1
     Route: 065
     Dates: start: 20190117
  23. VINCRISTINE [Suspect]
     Active Substance: VINCRISTINE
     Indication: DIFFUSE LARGE B-CELL LYMPHOMA
     Dosage: R-CHOP CYCLE 1
     Route: 065
     Dates: start: 20190117
  24. VINCRISTINE [Suspect]
     Active Substance: VINCRISTINE
     Dosage: R-CHOP CYCLE 3
     Route: 065
     Dates: start: 20190321
  25. PREDNISOLONE. [Suspect]
     Active Substance: PREDNISOLONE
     Dosage: R-CHOP CYCLE 2
     Route: 065
     Dates: start: 20190227, end: 20190228
  26. CYTOSINE ARABINOSIDE [Suspect]
     Active Substance: CYTARABINE
     Dosage: R-DHAP CYCLE 3
     Route: 065
     Dates: start: 20190529, end: 20190601
  27. CISPLATIN. [Suspect]
     Active Substance: CISPLATIN
     Dosage: R-DHAP CYCLE 4
     Route: 065
     Dates: start: 20190715, end: 20190719
  28. PREDNISOLONE. [Suspect]
     Active Substance: PREDNISOLONE
     Dosage: R-CHOP CYCLE 3
     Route: 065
     Dates: start: 20190321
  29. CYTOSINE ARABINOSIDE [Suspect]
     Active Substance: CYTARABINE
     Dosage: R-DHAP CYCLE 4
     Route: 065
     Dates: start: 20190715, end: 20190719
  30. CISPLATIN. [Suspect]
     Active Substance: CISPLATIN
     Dosage: R-DHAP CYCLE 2
     Route: 065
     Dates: start: 20190509, end: 20190512

REACTIONS (8)
  - Pancytopenia [Unknown]
  - Acute kidney injury [Unknown]
  - Staphylococcal bacteraemia [Unknown]
  - White blood cell count decreased [Unknown]
  - Neutropenic sepsis [Unknown]
  - Axillary mass [Recovering/Resolving]
  - Diffuse large B-cell lymphoma refractory [Unknown]
  - Positron emission tomogram [Unknown]

NARRATIVE: CASE EVENT DATE: 20190227
